FAERS Safety Report 7476297-0 (Version None)
Quarter: 2011Q2

REPORT INFORMATION
  Report Type: 
  Country: None (occurrence: None)
  Receive Date: 20110512
  Receipt Date: 20110503
  Transmission Date: 20111010
  Serious: Yes (Hospitalization, Other)
  Sender: FDA-Public Use
  Company Number: US-ASTRAZENECA-2010SE41516

PATIENT
  Age: 865 Month
  Sex: Female
  Weight: 63.5 kg

DRUGS (2)
  1. SEROQUEL [Suspect]
     Route: 048
     Dates: start: 20080101
  2. SEROQUEL [Suspect]
     Indication: BIPOLAR DISORDER
     Route: 048
     Dates: start: 20080101

REACTIONS (5)
  - CONFUSIONAL STATE [None]
  - COMMUNICATION DISORDER [None]
  - NEOPLASM MALIGNANT [None]
  - TERMINAL STATE [None]
  - DEPRESSION [None]
